FAERS Safety Report 9198359 (Version 1)
Quarter: 2013Q1

REPORT INFORMATION
  Report Type: Spontaneous
  Country: GB (occurrence: GB)
  Receive Date: 20130329
  Receipt Date: 20130329
  Transmission Date: 20140127
  Serious: Yes (Hospitalization)
  Sender: FDA-Public Use
  Company Number: GB-PFIZER INC-2006089661

PATIENT
  Age: 18 Year
  Sex: Male

DRUGS (1)
  1. IBUPROFEN [Suspect]
     Indication: BACK PAIN
     Dosage: SEVEN 400 MG DOSES DAILY
     Route: 065

REACTIONS (3)
  - Intentional self-injury [Recovered/Resolved]
  - Pancreatitis acute [Recovered/Resolved]
  - Intentional overdose [Recovered/Resolved]
